FAERS Safety Report 9511708 (Version 1)
Quarter: 2013Q3

REPORT INFORMATION
  Report Type: Spontaneous
  Country: US (occurrence: None)
  Receive Date: 20130909
  Receipt Date: 20130909
  Transmission Date: 20140515
  Serious: Yes (Disabling, Other)
  Sender: FDA-Public Use
  Company Number: None

PATIENT
  Age: 64 Year
  Sex: Male
  Weight: 108.86 kg

DRUGS (1)
  1. LATUDA [Suspect]
     Indication: DEPRESSION
     Dosage: ONCE DAILY

REACTIONS (2)
  - Tardive dyskinesia [None]
  - Tourette^s disorder [None]
